FAERS Safety Report 4721923-X (Version None)
Quarter: 2005Q3

REPORT INFORMATION
  Report Type: 
  Country: None (occurrence: None)
  Receive Date: 20050722
  Receipt Date: 20050531
  Transmission Date: 20060218
  Serious: Yes (Hospitalization, Other)
  Sender: FDA-Public Use
  Company Number: US-AMGEN-US129686

PATIENT
  Sex: Male
  Weight: 71.7 kg

DRUGS (18)
  1. EPOGEN [Suspect]
     Indication: DIALYSIS
     Route: 042
     Dates: start: 20021001, end: 20050401
  2. ALLOPURINOL [Concomitant]
     Dates: start: 20040322
  3. COGENTIN [Concomitant]
  4. CALCITRIOL [Concomitant]
  5. PROTONIX [Concomitant]
     Dates: start: 20040322
  6. NEORAL [Concomitant]
  7. SYNTHROID [Concomitant]
     Dates: start: 20040615
  8. LOPRESSOR [Concomitant]
     Dates: start: 20050222
  9. PROCARDIA [Concomitant]
  10. RAPAMUNE [Concomitant]
  11. PREDNISONE [Concomitant]
     Dates: start: 20050404
  12. COLCHICINE [Concomitant]
  13. NEPHRO-VITE [Concomitant]
  14. VENOFER [Concomitant]
     Route: 042
     Dates: start: 20041115
  15. LITHIUM [Concomitant]
     Dates: start: 20040729
  16. RISPERDAL [Concomitant]
  17. KLONOPIN [Concomitant]
  18. IMURAN [Concomitant]

REACTIONS (9)
  - ANTI-PLATELET ANTIBODY POSITIVE [None]
  - APLASTIC ANAEMIA [None]
  - BIPOLAR I DISORDER [None]
  - CONDITION AGGRAVATED [None]
  - OEDEMA PERIPHERAL [None]
  - PANCYTOPENIA [None]
  - SPLENIC CYST [None]
  - THERAPEUTIC RESPONSE DECREASED [None]
  - TRANSPLANT REJECTION [None]
